FAERS Safety Report 5874875-3 (Version None)
Quarter: 2008Q3

REPORT INFORMATION
  Report Type: 
  Country: None (occurrence: None)
  Receive Date: 20080909
  Receipt Date: 20080829
  Transmission Date: 20090109
  Serious: Yes (Hospitalization)
  Sender: FDA-Public Use
  Company Number: JP-NOVOPROD-276813

PATIENT
  Sex: Female
  Weight: 68 kg

DRUGS (12)
  1. NOVONORM 0.5 MG [Suspect]
     Indication: TYPE 2 DIABETES MELLITUS
     Dosage: UNK, UNK
     Route: 048
     Dates: start: 20080414, end: 20080617
  2. PLACEBO TABLET [Suspect]
     Indication: TYPE 2 DIABETES MELLITUS
     Route: 048
     Dates: start: 20080414, end: 20080617
  3. NORVASC [Concomitant]
     Indication: HYPERTENSION
     Dosage: 5 MG, QD
     Route: 048
     Dates: start: 20020108
  4. THEOLONG [Concomitant]
  5. TULOBUTEROL [Concomitant]
     Indication: ASTHMA
     Dosage: TAPE
     Route: 062
     Dates: start: 20080617
  6. FAMOTIDINE [Concomitant]
     Indication: GASTRITIS PROPHYLAXIS
     Dosage: 20 MG, QD
     Route: 048
     Dates: start: 20080617
  7. INSIDE                             /00003801/ [Concomitant]
     Indication: ARTHRITIS
     Dosage: PATCH
     Route: 062
     Dates: start: 20080617
  8. DERMOSOL G [Concomitant]
     Indication: ECZEMA
     Dosage: PATCH
     Route: 062
     Dates: start: 20080617
  9. BIOFERMIN [Concomitant]
     Indication: ENTEROCOLITIS
     Dosage: 1 G, QD
     Route: 048
     Dates: start: 20080617
  10. TALION                             /01587402/ [Concomitant]
     Indication: ECZEMA
     Route: 048
     Dates: start: 20080617
  11. LIVOSTIN                           /01196302/ [Concomitant]
     Indication: CONJUNCTIVITIS ALLERGIC
     Dates: start: 20080617
  12. SHOUSEIRYUUTOU [Concomitant]
     Indication: ASTHMA
     Dosage: 5 G, QD
     Route: 048

REACTIONS (1)
  - CEREBRAL INFARCTION [None]
